FAERS Safety Report 25980956 (Version 2)
Quarter: 2025Q4

REPORT INFORMATION
  Report Type: Report from Study
  Country: CA (occurrence: CA)
  Receive Date: 20251030
  Receipt Date: 20251104
  Transmission Date: 20260118
  Serious: Yes (Death)
  Sender: ABBVIE
  Company Number: CA-ABBVIE-6525910

PATIENT
  Age: 87 Year
  Sex: Male

DRUGS (1)
  1. RINVOQ [Suspect]
     Active Substance: UPADACITINIB
     Indication: Colitis ulcerative
     Dosage: FORM STRENGTH- 30MG
     Route: 048

REACTIONS (1)
  - Death [Fatal]

NARRATIVE: CASE EVENT DATE: 20250901
